FAERS Safety Report 6923682-9 (Version None)
Quarter: 2010Q3

REPORT INFORMATION
  Report Type: 
  Country: None (occurrence: None)
  Receive Date: 20100813
  Receipt Date: 20100805
  Transmission Date: 20110219
  Serious: Yes (Hospitalization)
  Sender: FDA-Public Use
  Company Number: B0668645B

PATIENT

DRUGS (4)
  1. COMBIVIR [Suspect]
     Indication: HIV INFECTION
     Dates: start: 20070124, end: 20070214
  2. NELFINAVIR MESYLATE [Suspect]
     Indication: ANTIVIRAL PROPHYLAXIS
     Dates: start: 20070124, end: 20070214
  3. RETROVIR [Suspect]
     Indication: ANTIVIRAL PROPHYLAXIS
     Dates: start: 20070214, end: 20070214
  4. RETROVIR [Suspect]
     Route: 048
     Dates: start: 20070214, end: 20070328

REACTIONS (6)
  - ANAEMIA [None]
  - CEREBRAL HAEMORRHAGE [None]
  - DRUG EXPOSURE DURING PREGNANCY [None]
  - HYPERTONIA [None]
  - PREMATURE BABY [None]
  - RESPIRATORY DISTRESS [None]
